FAERS Safety Report 8582873-4 (Version None)
Quarter: 2012Q3

REPORT INFORMATION
  Report Type: 
  Country: None (occurrence: None)
  Receive Date: 20120809
  Receipt Date: 20120802
  Transmission Date: 20120928
  Serious: Yes (Other)
  Sender: FDA-Public Use
  Company Number: BR-PFIZER INC-2012188231

PATIENT
  Age: 65 Year
  Sex: Male
  Weight: 93 kg

DRUGS (4)
  1. LATANOPROST [Suspect]
     Indication: GLAUCOMA
     Dosage: 1.5 UG, 1X/DAY (AT NIGHT)
     Route: 047
     Dates: start: 20120701, end: 20120701
  2. PRESS PLUS [Concomitant]
     Dosage: UNK
  3. ASPIRIN [Concomitant]
     Dosage: UNK
  4. CRESTOR [Concomitant]
     Dosage: UNK

REACTIONS (7)
  - VISION BLURRED [None]
  - EYE IRRITATION [None]
  - CONJUNCTIVITIS [None]
  - EYE INJURY [None]
  - EYE DISORDER [None]
  - VISUAL ACUITY REDUCED [None]
  - HEADACHE [None]
